FAERS Safety Report 10770538 (Version 2)
Quarter: 2015Q1

REPORT INFORMATION
  Report Type: Spontaneous
  Country: US (occurrence: US)
  Receive Date: 20150206
  Receipt Date: 20150209
  Transmission Date: 20150721
  Serious: Yes (Hospitalization)
  Sender: FDA-Public Use
  Company Number: US-BAYER-2015-015643

PATIENT
  Age: 74 Year
  Sex: Male
  Weight: 90.7 kg

DRUGS (1)
  1. NEXAVAR [Suspect]
     Active Substance: SORAFENIB
     Indication: HEPATOCELLULAR CARCINOMA
     Dosage: DAILY DOSE 400 MG
     Dates: start: 20150106

REACTIONS (2)
  - Pancreatitis [None]
  - Abdominal pain [None]

NARRATIVE: CASE EVENT DATE: 20150121
